FAERS Safety Report 5718192-0 (Version None)
Quarter: 2008Q2

REPORT INFORMATION
  Report Type: 
  Country: None (occurrence: None)
  Receive Date: 20080425
  Receipt Date: 20080414
  Transmission Date: 20081010
  Serious: Yes (Other)
  Sender: FDA-Public Use
  Company Number: JP-ROCHE-552686

PATIENT
  Sex: Male
  Weight: 19 kg

DRUGS (6)
  1. TAMIFLU [Suspect]
     Route: 048
     Dates: start: 20080228, end: 20080228
  2. IFRASARL [Suspect]
     Indication: DRUG USE FOR UNKNOWN INDICATION
     Dosage: TAKEN AS NEEDED.
     Route: 048
  3. HUSCODE [Concomitant]
     Route: 048
     Dates: start: 20080228
  4. HUSCODE [Concomitant]
     Route: 048
     Dates: start: 20080228
  5. HUSCODE [Concomitant]
     Route: 048
     Dates: start: 20080228
  6. CALONAL [Concomitant]
     Dosage: TAKEN AS NEEDED.
     Route: 048
     Dates: start: 20080228, end: 20080228

REACTIONS (1)
  - ABNORMAL BEHAVIOUR [None]
